FAERS Safety Report 17435210 (Version 1)
Quarter: 2020Q1

REPORT INFORMATION
  Report Type: Spontaneous
  Country: US (occurrence: US)
  Receive Date: 20200219
  Receipt Date: 20200219
  Transmission Date: 20200409
  Serious: Yes (Other)
  Sender: FDA-Public Use
  Company Number: US-MYLANLABS-2020M1018336

PATIENT
  Age: 36 Year
  Sex: Female

DRUGS (1)
  1. BUPRENORPHINE HYDROCHLORIDE/NALOXONE HYDROCHLORIDE [Suspect]
     Active Substance: BUPRENORPHINE HYDROCHLORIDE\NALOXONE HYDROCHLORIDE
     Indication: PRODUCT USED FOR UNKNOWN INDICATION
     Dosage: SC INJECTION OF CRUSHED BUPRENORPHINE/NALOXONE TABLETS CONTAINING CROSPOVIDONE
     Route: 058

REACTIONS (4)
  - Foreign body reaction [Unknown]
  - Incorrect route of product administration [Unknown]
  - Drug abuse [Unknown]
  - Skin necrosis [Unknown]
